FAERS Safety Report 6376267-X (Version None)
Quarter: 2009Q3

REPORT INFORMATION
  Report Type: 
  Country: None (occurrence: None)
  Receive Date: 20090925
  Receipt Date: 20090915
  Transmission Date: 20100115
  Serious: Yes (Death, Hospitalization)
  Sender: FDA-Public Use
  Company Number: US-BIOGENIDEC-2008BI013822

PATIENT
  Sex: Female

DRUGS (14)
  1. AVONEX [Suspect]
     Indication: MULTIPLE SCLEROSIS
     Route: 030
     Dates: start: 20080310, end: 20080512
  2. AVONEX [Suspect]
     Route: 030
     Dates: start: 20080101
  3. PROZAC [Concomitant]
     Indication: DEPRESSION
     Route: 048
  4. MIRAPEX [Concomitant]
     Indication: MULTIPLE SCLEROSIS
     Route: 048
  5. BACLOFEN [Concomitant]
     Indication: MUSCLE SPASMS
     Route: 048
  6. RILUTEK [Concomitant]
     Indication: AMYOTROPHIC LATERAL SCLEROSIS
     Route: 048
  7. LIPITOR [Concomitant]
     Indication: DYSLIPIDAEMIA
     Route: 048
  8. NORVASC [Concomitant]
     Indication: HYPERTENSION
     Route: 048
  9. METOPROLOL [Concomitant]
     Indication: HYPERTENSION
     Route: 048
  10. TIZANIDINE HCL [Concomitant]
     Indication: MUSCLE SPASMS
     Route: 048
  11. QUINIDINE SULFATE [Concomitant]
     Indication: DEPRESSION
     Route: 048
  12. COUMADIN [Concomitant]
     Indication: DEEP VEIN THROMBOSIS
     Dates: start: 20070101, end: 20080401
  13. PROTONIX [Concomitant]
     Indication: PROPHYLAXIS
     Dates: start: 20080501
  14. VALIUM [Concomitant]
     Indication: DRUG USE FOR UNKNOWN INDICATION

REACTIONS (32)
  - AFFECT LABILITY [None]
  - ALANINE AMINOTRANSFERASE INCREASED [None]
  - AMYOTROPHIC LATERAL SCLEROSIS [None]
  - APHASIA [None]
  - AREFLEXIA [None]
  - ASPARTATE AMINOTRANSFERASE INCREASED [None]
  - ASTHENIA [None]
  - BLOOD ALBUMIN DECREASED [None]
  - BLOOD GLUCOSE INCREASED [None]
  - CELLULITIS [None]
  - CENTRAL NERVOUS SYSTEM LESION [None]
  - CLOSTRIDIUM DIFFICILE COLITIS [None]
  - DECREASED APPETITE [None]
  - DECREASED VIBRATORY SENSE [None]
  - DEHYDRATION [None]
  - DEPRESSION [None]
  - DIARRHOEA [None]
  - DYSARTHRIA [None]
  - DYSKINESIA [None]
  - DYSPHAGIA [None]
  - EXTREMITY CONTRACTURE [None]
  - EYE MOVEMENT DISORDER [None]
  - FACIAL PARESIS [None]
  - FATIGUE [None]
  - INTERNATIONAL NORMALISED RATIO INCREASED [None]
  - MUSCLE RIGIDITY [None]
  - MUSCLE SPASTICITY [None]
  - NAUSEA [None]
  - PROTHROMBIN TIME PROLONGED [None]
  - PYREXIA [None]
  - TREMOR [None]
  - WEIGHT DECREASED [None]
